FAERS Safety Report 10882144 (Version 3)
Quarter: 2015Q1

REPORT INFORMATION
  Report Type: Report from Study
  Country: DK (occurrence: DK)
  Receive Date: 20150303
  Receipt Date: 20150326
  Transmission Date: 20150721
  Serious: Yes (Hospitalization)
  Sender: FDA-Public Use
  Company Number: DK-AMGEN-DNKCT2015019337

PATIENT
  Age: 61 Year
  Sex: Male
  Weight: 52 kg

DRUGS (18)
  1. PEGFILGRASTIM [Suspect]
     Active Substance: PEGFILGRASTIM
     Indication: DIFFUSE LARGE B-CELL LYMPHOMA
     Dosage: 6 MG, UNK
     Route: 058
     Dates: start: 20110720
  2. PEGFILGRASTIM [Suspect]
     Active Substance: PEGFILGRASTIM
     Dosage: 6 MG, UNK
     Route: 058
     Dates: start: 20110804
  3. PREDNISONE. [Concomitant]
     Active Substance: PREDNISONE
     Dosage: LAST DOSE PRIOR TO SAE: 07/AUG/2011
     Route: 048
     Dates: start: 20110803
  4. CYCLOPHOSPHAMIDE. [Concomitant]
     Active Substance: CYCLOPHOSPHAMIDE
     Dosage: DISCONTINUED PERMANENTLY
     Route: 042
     Dates: start: 20110818, end: 20110818
  5. VINCRISTINE [Concomitant]
     Active Substance: VINCRISTINE
     Dosage: LAST DOSE PRIOR TO SAE: 03/AUG/2011
     Route: 042
     Dates: start: 20110803
  6. RITUXIMAB [Concomitant]
     Active Substance: RITUXIMAB
     Indication: DIFFUSE LARGE B-CELL LYMPHOMA
     Dosage: LAST DOSE PRIOR TO SAE: 18/JUL/2011
     Route: 042
     Dates: start: 20110718
  7. RITUXIMAB [Concomitant]
     Active Substance: RITUXIMAB
     Dosage: LAST DOSE PRIOR TO SAE: 03/AUG/2011
     Route: 042
     Dates: start: 20110803
  8. RITUXIMAB [Concomitant]
     Active Substance: RITUXIMAB
     Dosage: DISCONTINUED PERMANENTLY
     Route: 042
     Dates: start: 20110818, end: 20110818
  9. PREDNISONE. [Concomitant]
     Active Substance: PREDNISONE
     Dosage: DISCONTINUED PERMANENTLY
     Route: 048
     Dates: start: 20110818, end: 20110822
  10. VINCRISTINE [Concomitant]
     Active Substance: VINCRISTINE
     Indication: DIFFUSE LARGE B-CELL LYMPHOMA
     Dosage: LAST DOSE PRIOR SAE: 18/JUL/2011
     Route: 042
     Dates: start: 20110718
  11. DOXORUBICIN [Concomitant]
     Active Substance: DOXORUBICIN
     Dosage: DISCONTINUED PERMANENTLY
     Route: 042
     Dates: start: 20110818, end: 20110818
  12. CYCLOPHOSPHAMIDE. [Concomitant]
     Active Substance: CYCLOPHOSPHAMIDE
     Indication: DIFFUSE LARGE B-CELL LYMPHOMA
     Dosage: LAST DOSE PRIOR SAE: 18/JUL/2011
     Route: 042
     Dates: start: 20110718
  13. CYCLOPHOSPHAMIDE. [Concomitant]
     Active Substance: CYCLOPHOSPHAMIDE
     Dosage: LAST DOSE PRIOR TO SAE: 03/AUG/2011
     Route: 042
     Dates: start: 20110803
  14. VINCRISTINE [Concomitant]
     Active Substance: VINCRISTINE
     Dosage: DISCONTINUED PERMANENTLY
     Route: 042
     Dates: start: 20110818, end: 20110818
  15. DOXORUBICIN [Concomitant]
     Active Substance: DOXORUBICIN
     Indication: DIFFUSE LARGE B-CELL LYMPHOMA
     Dosage: LAST DOSE PRIOR SAE: 18/JUL/2011
     Route: 042
     Dates: start: 20110718
  16. DOXORUBICIN [Concomitant]
     Active Substance: DOXORUBICIN
     Dosage: LAST DOSE PRIOR TO SAE: 03/AUG/2011
     Route: 042
     Dates: start: 20110803
  17. PEGFILGRASTIM [Suspect]
     Active Substance: PEGFILGRASTIM
     Dosage: 6 MG, UNK
     Route: 058
     Dates: start: 20110819, end: 20110819
  18. PREDNISONE. [Concomitant]
     Active Substance: PREDNISONE
     Indication: DIFFUSE LARGE B-CELL LYMPHOMA
     Dosage: LAST DOSE PRIOR SAE: 22/JUL/2011
     Route: 048
     Dates: start: 20110718

REACTIONS (4)
  - Febrile neutropenia [Recovered/Resolved]
  - Diarrhoea [Recovered/Resolved]
  - Weight decreased [Recovered/Resolved]
  - Stomatitis [Recovered/Resolved]

NARRATIVE: CASE EVENT DATE: 20110719
